FAERS Safety Report 7671974-0 (Version None)
Quarter: 2011Q3

REPORT INFORMATION
  Report Type: 
  Country: None (occurrence: None)
  Receive Date: 20110809
  Receipt Date: 20110728
  Transmission Date: 20111222
  Serious: Yes (Hospitalization)
  Sender: FDA-Public Use
  Company Number: DE-GLAXOSMITHKLINE-B0737576A

PATIENT
  Sex: Female

DRUGS (14)
  1. MAGNESIUM CHLORIDE [Concomitant]
  2. ALLOPURINOL [Concomitant]
     Dates: start: 20110218, end: 20110228
  3. BISOPROLOL FUMARATE [Concomitant]
     Dates: start: 20101117
  4. PANTOPRAZOLE [Concomitant]
     Dates: start: 20101117
  5. POTASSIUM CHLORIDE [Concomitant]
  6. SPIRO COMP [Concomitant]
     Dates: start: 20110105
  7. LEVOTHYROXINE SODIUM [Concomitant]
     Dates: start: 19840801
  8. CHLORAMBUCIL [Suspect]
     Indication: CHRONIC LYMPHOCYTIC LEUKAEMIA
     Dosage: 50MG EVERY TWO WEEKS
     Route: 048
     Dates: start: 20101207
  9. PLAVIX [Concomitant]
     Dates: start: 20101117
  10. ASPIRIN [Concomitant]
     Dates: start: 20101117
  11. AMPHOTERICIN B [Concomitant]
     Dates: start: 20110218, end: 20110222
  12. ESIDRIX [Concomitant]
     Dates: start: 20110217
  13. SIMVASTATIN [Concomitant]
     Dates: start: 20110218
  14. LOSARTAN POTASSIUM [Concomitant]
     Dates: start: 20110105

REACTIONS (1)
  - PNEUMONIA [None]
